FAERS Safety Report 25171580 (Version 1)
Quarter: 2025Q2

REPORT INFORMATION
  Report Type: Spontaneous
  Country: RO (occurrence: RO)
  Receive Date: 20250408
  Receipt Date: 20250408
  Transmission Date: 20250717
  Serious: Yes (Other)
  Sender: ALEXION PHARMACEUTICALS
  Company Number: RO-AstraZeneca-2022A359857

PATIENT
  Age: 59 Year
  Weight: 68 kg

DRUGS (5)
  1. FASENRA [Suspect]
     Active Substance: BENRALIZUMAB
     Indication: Asthma
     Dosage: Q8W
  2. BUDESONIDE\FORMOTEROL [Suspect]
     Active Substance: BUDESONIDE\FORMOTEROL
     Indication: Asthma
     Dosage: 320/9 UG, BID
  3. TIOTROPIUM [Concomitant]
     Active Substance: TIOTROPIUM
  4. THEOPHYLLINE [Concomitant]
     Active Substance: THEOPHYLLINE
  5. THEOPHYLLINE [Concomitant]
     Active Substance: THEOPHYLLINE

REACTIONS (1)
  - Asthma [Recovered/Resolved]
